FAERS Safety Report 24411605 (Version 1)
Quarter: 2024Q4

REPORT INFORMATION
  Report Type: Report from Study
  Country: CA (occurrence: CA)
  Receive Date: 20241008
  Receipt Date: 20241008
  Transmission Date: 20250115
  Serious: Yes (Disabling, Other)
  Sender: SANDOZ
  Company Number: CA-002147023-NVSC2022CA073514

PATIENT
  Sex: Female

DRUGS (3)
  1. ERELZI [Suspect]
     Active Substance: ETANERCEPT-SZZS
     Indication: Rheumatoid arthritis
     Dosage: 50 MG, QW
     Route: 058
     Dates: start: 20220103
  2. ERELZI [Suspect]
     Active Substance: ETANERCEPT-SZZS
     Dosage: 50 MG, QW
     Route: 058
     Dates: start: 20220321
  3. METHOTREXATE [Suspect]
     Active Substance: METHOTREXATE
     Indication: Product used for unknown indication
     Dosage: UNK UNK, QW
     Route: 048
     Dates: start: 20050119

REACTIONS (26)
  - Loss of personal independence in daily activities [Unknown]
  - Bronchitis [Unknown]
  - Pneumonia [Unknown]
  - Gait disturbance [Unknown]
  - Rhinorrhoea [Unknown]
  - Malaise [Unknown]
  - Cough [Unknown]
  - Sneezing [Unknown]
  - Oropharyngeal pain [Unknown]
  - Arthralgia [Unknown]
  - Tremor [Unknown]
  - Sciatic nerve injury [Unknown]
  - Unevaluable event [Unknown]
  - Back pain [Unknown]
  - Musculoskeletal pain [Unknown]
  - Pain in extremity [Unknown]
  - Illness [Unknown]
  - Pyrexia [Unknown]
  - Myalgia [Unknown]
  - Nasopharyngitis [Unknown]
  - Dyspnoea [Unknown]
  - Dysphonia [Unknown]
  - Tangentiality [Unknown]
  - General physical health deterioration [Unknown]
  - Drug ineffective [Unknown]
  - Product dose omission issue [Unknown]
